FAERS Safety Report 6686862-6 (Version None)
Quarter: 2010Q2

REPORT INFORMATION
  Report Type: 
  Country: None (occurrence: None)
  Receive Date: 20100414
  Receipt Date: 20100409
  Transmission Date: 20101027
  Serious: Yes (Other)
  Sender: FDA-Public Use
  Company Number: JP-1180933

PATIENT
  Age: 48 Year
  Sex: Female

DRUGS (6)
  1. TRAVAETAN Z (TRAVOPROST) 0.004 % [Suspect]
     Indication: OPEN ANGLE GLAUCOMA
     Dosage: 1GTT QD OU
     Route: 047
     Dates: start: 20100130, end: 20100219
  2. HYLONSAN (HYLURONATE SODIUM) [Concomitant]
  3. AZOPT [Concomitant]
  4. NEXAVAR [Concomitant]
  5. PERAPRIN (METOCLOPRAMIDE HYDROCHLORIDE) [Concomitant]
  6. LUBU (LOXOPROFEN SODIUM) [Concomitant]

REACTIONS (5)
  - ANTERIOR CHAMBER CELL [None]
  - CORNEAL OPACITY [None]
  - IRITIS [None]
  - UVEITIS [None]
  - VIRAL INFECTION [None]
